FAERS Safety Report 4869638-1 (Version None)
Quarter: 2005Q4

REPORT INFORMATION
  Report Type: 
  Country: None (occurrence: None)
  Receive Date: 20051227
  Receipt Date: 20051220
  Transmission Date: 20060501
  Serious: Yes (Other)
  Sender: FDA-Public Use
  Company Number: HQWYE105920DEC05

PATIENT
  Age: 50 Year
  Sex: Male

DRUGS (1)
  1. RAPAMUNE [Suspect]
     Indication: PROPHYLAXIS AGAINST TRANSPLANT REJECTION
     Dates: start: 20031007, end: 20040114

REACTIONS (2)
  - HAEMODIALYSIS [None]
  - KIDNEY TRANSPLANT REJECTION [None]
